FAERS Safety Report 4785216-7 (Version None)
Quarter: 2005Q3

REPORT INFORMATION
  Report Type: 
  Country: None (occurrence: None)
  Receive Date: 20050929
  Receipt Date: 20050913
  Transmission Date: 20060218
  Serious: Yes (Other)
  Sender: FDA-Public Use
  Company Number: B0340418A

PATIENT
  Age: 36 Year
  Sex: Female

DRUGS (1)
  1. ONDANSETRON HCL [Suspect]
     Indication: POST PROCEDURAL NAUSEA
     Dosage: 4 MG/ SINGLE DOSE / INTRAVENOUS
     Route: 042
     Dates: start: 20040623, end: 20040623

REACTIONS (6)
  - BLINDNESS TRANSIENT [None]
  - CHEST DISCOMFORT [None]
  - DRUG LEVEL INCREASED [None]
  - DYSPNOEA [None]
  - FEELING ABNORMAL [None]
  - VISION BLURRED [None]
